FAERS Safety Report 8979235 (Version 1)
Quarter: 2012Q4

REPORT INFORMATION
  Report Type: 
  Country: BR (occurrence: BR)
  Receive Date: 20121221
  Receipt Date: 20121221
  Transmission Date: 20130627
  Serious: Yes (Hospitalization)
  Sender: FDA-Public Use
  Company Number: BR-GLAXOSMITHKLINE-B0854461A

PATIENT
  Age: 74 None
  Sex: Male

DRUGS (5)
  1. PROPAFENONE HYDROCHLORIDE [Suspect]
     Indication: ARRHYTHMIA
     Dosage: 150MG Three times per day
     Route: 048
     Dates: start: 2004
  2. AVODART [Suspect]
     Indication: PROSTATIC DISORDER
     Route: 065
  3. UNKNOWN DRUG [Concomitant]
     Dates: start: 201111
  4. SECOTEX [Concomitant]
  5. CITALOR [Concomitant]
     Indication: BLOOD CHOLESTEROL

REACTIONS (16)
  - Treatment noncompliance [Unknown]
  - Dizziness [Not Recovered/Not Resolved]
  - Asthenia [Not Recovered/Not Resolved]
  - Listless [Not Recovered/Not Resolved]
  - Malaise [Not Recovered/Not Resolved]
  - Somnolence [Not Recovered/Not Resolved]
  - Memory impairment [Not Recovered/Not Resolved]
  - Anxiety [Not Recovered/Not Resolved]
  - Spinal pain [Not Recovered/Not Resolved]
  - Neck pain [Not Recovered/Not Resolved]
  - Labyrinthitis [Not Recovered/Not Resolved]
  - Benign neoplasm of prostate [Not Recovered/Not Resolved]
  - Heart rate increased [Recovered/Resolved]
  - Weight fluctuation [Unknown]
  - Drug dose omission [None]
  - Prostatomegaly [None]
